FAERS Safety Report 8126807 (Version 4)
Quarter: 2012Q4

REPORT INFORMATION
  Report Type: Report from Study
  Country: US (occurrence: None)
  Receive Date: 20110829
  Receipt Date: 20120912
  Transmission Date: 20130627
  Serious: Yes (Hospitalization, Other)
  Sender: FDA-Public Use
  Company Number: US-2011-10588

PATIENT
  Age: 41 Year
  Sex: Male

DRUGS (31)
  1. BUSULFAN [Suspect]
     Indication: STEM CELL TRANSPLANT
     Route: 042
     Dates: start: 20110620, end: 20110620
  2. BUSULFAN [Suspect]
     Indication: STEM CELL TRANSPLANT
     Route: 042
     Dates: start: 20110623, end: 20110626
  3. ETOPOSIDE [Concomitant]
  4. CYCLOPHOSPHAMIDE [Concomitant]
  5. ACYCLOVIR (ACICLOVIR) (ACICLOVIR) [Concomitant]
  6. ZOVIRAX (ACICLOVIR SODIUM) [Concomitant]
  7. FLUCONAZOLE NM (FLUCONAZOLE) [Concomitant]
  8. ZOSYN (PIPERACILLIN SODIUM, TAZOBACTAM SODIUM) [Concomitant]
  9. VANCOMYCIN (VANCOMYCIN) [Concomitant]
  10. ERGOCALCIFEROL (ERGOCALCIFEROL) [Concomitant]
  11. NEUPOGEN (FILGRASTIM) [Concomitant]
  12. PANTOPRAZOLE SODIUM (PANTOPRAZOLE SODIUM) [Concomitant]
  13. ZANTAC (RANITIDINE HYDROCHLORIDE) [Concomitant]
  14. ACTIGALL (URSODEOXYCHOLIC ACID) [Concomitant]
  15. TYLENOL (PARACETAMOL) [Concomitant]
  16. BENADRYL (DIPHENHYDRAMINE HYDROCHLORIDE) [Concomitant]
  17. IMODIUM (LOPERAMIDE HYDROCHLORIDE) [Concomitant]
  18. ATIVAN (LORAZEPAM) [Concomitant]
  19. MAALOX (ALUMINIUM HYDROXIDE, MAGNESIUM HYDROXIDE) [Concomitant]
  20. HYDROCERIN (PARAFFIN, LIQUID, WOOL ALCOHOLS) [Concomitant]
  21. NUBAIN (NALBUPHINE HYDROCHLORIDE) [Concomitant]
  22. ZOFRAN (ONDANSETRON HYDROCHLORIDE) [Concomitant]
  23. OXYCODONE (OXYCODONE HYDROCHLORIDE) (OXYCODONE) [Concomitant]
  24. MIRALAX (MACROGOL) [Concomitant]
  25. ARTIFICIAL TEARS (POLYVINYL ALCOHOL) [Concomitant]
  26. COMPAZINE (PROCHLORPERAZINE EDISYLATE) [Concomitant]
  27. OCEAN SPRAY [Concomitant]
  28. MAGIC MOUTHWASH [Concomitant]
  29. SALT AND SODA MOUTHWASH [Concomitant]
  30. MORPHINE [Concomitant]
  31. D5%0.45%NACL [Concomitant]

REACTIONS (7)
  - Renal failure acute [None]
  - Vomiting [None]
  - Mucosal inflammation [None]
  - Oesophagitis [None]
  - Urinary retention [None]
  - Renal tubular necrosis [None]
  - Diabetes insipidus [None]
